FAERS Safety Report 7240928-0 (Version None)
Quarter: 2011Q1

REPORT INFORMATION
  Report Type: 
  Country: None (occurrence: None)
  Receive Date: 20110124
  Receipt Date: 20110113
  Transmission Date: 20110831
  Serious: Yes (Other)
  Sender: FDA-Public Use
  Company Number: PHFR2010IE06092

PATIENT
  Sex: Female

DRUGS (7)
  1. CLOZARIL [Suspect]
     Indication: SCHIZOPHRENIA
     Dosage: UNK
     Route: 048
     Dates: start: 19960117
  2. CITALOPRAM HYDROBROMIDE [Concomitant]
     Dosage: 20MG DAILY
     Route: 048
  3. MEFENAMIC ACID [Suspect]
     Indication: PAIN
     Dosage: 750MG DAILY
     Route: 048
     Dates: start: 20101223, end: 20101230
  4. DIAZEPAM [Suspect]
     Dosage: 15MG DAILY
     Route: 048
  5. CLOZARIL [Suspect]
     Indication: PSYCHOTIC DISORDER
     Dosage: 600MG DAILY
     Route: 048
  6. KWELLS [Concomitant]
     Dosage: 300MG DAILY
  7. EPILIM CHRONO [Concomitant]
     Dosage: 1200MG DAILY
     Route: 048

REACTIONS (2)
  - WRIST FRACTURE [None]
  - FALL [None]
